FAERS Safety Report 15962678 (Version 1)
Quarter: 2019Q1

REPORT INFORMATION
  Report Type: Spontaneous
  Country: FR (occurrence: FR)
  Receive Date: 20190214
  Receipt Date: 20190214
  Transmission Date: 20190417
  Serious: Yes (Life-Threatening)
  Sender: FDA-Public Use
  Company Number: FR-PFIZER INC-2019061719

PATIENT
  Sex: Male
  Weight: 3 kg

DRUGS (4)
  1. EFFEXOR [Suspect]
     Active Substance: VENLAFAXINE HYDROCHLORIDE
     Indication: AFFECTIVE DISORDER
     Dosage: 225 MG, 1X/DAY DURING PREGNANCY
     Route: 064
     Dates: end: 20181224
  2. LARGACTIL [CHLORPROMAZINE HYDROCHLORIDE] [Suspect]
     Active Substance: CHLORPROMAZINE HYDROCHLORIDE
     Indication: AFFECTIVE DISORDER
     Dosage: UNK
     Route: 064
     Dates: start: 201811, end: 201811
  3. SERESTA [Suspect]
     Active Substance: OXAZEPAM
     Indication: AFFECTIVE DISORDER
     Dosage: 10 MG, (FROM 1 TO 3 TIMES DAILY)
     Route: 064
     Dates: end: 20181224
  4. ZYPREXA [Suspect]
     Active Substance: OLANZAPINE
     Indication: AFFECTIVE DISORDER
     Dosage: UNK
     Route: 064
     Dates: start: 201811, end: 201811

REACTIONS (3)
  - Hypotonia neonatal [Recovered/Resolved]
  - Respiratory distress [Recovered/Resolved]
  - Maternal exposure during pregnancy [Unknown]

NARRATIVE: CASE EVENT DATE: 20181224
